FAERS Safety Report 10618568 (Version 2)
Quarter: 2014Q4

REPORT INFORMATION
  Report Type: Spontaneous
  Country: US (occurrence: None)
  Receive Date: 20141125
  Receipt Date: 20141211
  Transmission Date: 20150529
  Serious: Yes (Other)
  Sender: FDA-Public Use
  Company Number: 20140747

PATIENT
  Age: 71 Year
  Sex: Male

DRUGS (6)
  1. EPTIFIBATIDE [Concomitant]
     Active Substance: EPTIFIBATIDE
  2. TICAGRELOR [Suspect]
     Active Substance: TICAGRELOR
     Indication: STENT PLACEMENT
     Dosage: 180 MG LOADING DOSE
  3. ASPIRIN. [Concomitant]
     Active Substance: ASPIRIN
  4. TICAGRELOR [Suspect]
     Active Substance: TICAGRELOR
     Dosage: 180 MG LOADING DOSE
  5. HEPARIN [Concomitant]
     Active Substance: HEPARIN SODIUM
  6. PHENYTOIN SODIUM INJECTION (40042-009-02) 50MG/ML [Suspect]
     Active Substance: PHENYTOIN SODIUM
     Indication: SEIZURE

REACTIONS (2)
  - Drug interaction [None]
  - Platelet aggregation increased [None]
